FAERS Safety Report 16325034 (Version 1)
Quarter: 2019Q2

REPORT INFORMATION
  Report Type: Spontaneous
  Country: PT (occurrence: PT)
  Receive Date: 20190517
  Receipt Date: 20190517
  Transmission Date: 20190711
  Serious: Yes (Other)
  Sender: FDA-Public Use
  Company Number: PT-MYLANLABS-2019M1046481

PATIENT
  Age: 41 Year
  Sex: Female

DRUGS (9)
  1. OFLOXACIN. [Concomitant]
     Active Substance: OFLOXACIN
     Indication: KERATITIS FUNGAL
     Dosage: 3MG/ML; FIVE TIMES A DAY
     Route: 061
  2. DEXAMETHASONE. [Concomitant]
     Active Substance: DEXAMETHASONE
     Indication: KERATITIS FUNGAL
     Dosage: 1 MG/ML
     Route: 065
  3. VORICONAZOLE. [Suspect]
     Active Substance: VORICONAZOLE
     Indication: KERATITIS FUNGAL
     Dosage: SIX TIMES A DAY
     Route: 061
  4. VORICONAZOLE. [Suspect]
     Active Substance: VORICONAZOLE
     Dosage: UNK
     Route: 050
  5. AMPHOTERICIN B. [Concomitant]
     Active Substance: AMPHOTERICIN B
     Indication: KERATITIS FUNGAL
     Dosage: SIX TIMES DAILY.
     Route: 061
  6. POSACONAZOLE [Concomitant]
     Active Substance: POSACONAZOLE
     Dosage: 300 MILLIGRAM, QD
     Route: 048
  7. CYCLOSPORINE. [Concomitant]
     Active Substance: CYCLOSPORINE
     Indication: KERATITIS FUNGAL
     Route: 061
  8. VORICONAZOLE. [Suspect]
     Active Substance: VORICONAZOLE
     Indication: KERATITIS FUNGAL
     Dosage: UNK
     Route: 042
  9. POSACONAZOLE [Concomitant]
     Active Substance: POSACONAZOLE
     Indication: KERATITIS FUNGAL
     Dosage: 400 MILLIGRAM
     Route: 048

REACTIONS (1)
  - Drug ineffective [Unknown]
